FAERS Safety Report 15048694 (Version 2)
Quarter: 2018Q2

REPORT INFORMATION
  Report Type: Report from Study
  Country: None (occurrence: BR)
  Receive Date: 20180622
  Receipt Date: 20180626
  Transmission Date: 20180711
  Serious: Yes (Death)
  Sender: FDA-Public Use
  Company Number: BR-ABBVIE-18K-020-2393829-00

PATIENT
  Sex: Female

DRUGS (1)
  1. HUMIRA [Suspect]
     Active Substance: ADALIMUMAB
     Indication: HIDRADENITIS
     Route: 058
     Dates: start: 20161027

REACTIONS (5)
  - Diverticulum [Fatal]
  - Gastrointestinal disorder [Not Recovered/Not Resolved]
  - Pneumonia [Fatal]
  - Psoriasis [Fatal]
  - Septic shock [Fatal]
